FAERS Safety Report 24750839 (Version 1)
Quarter: 2024Q4

REPORT INFORMATION
  Report Type: Spontaneous
  Country: CN (occurrence: CN)
  Receive Date: 20241219
  Receipt Date: 20241219
  Transmission Date: 20250115
  Serious: Yes (Hospitalization)
  Sender: NOVARTIS
  Company Number: CN-002147023-NVSC2024CN237299

PATIENT
  Age: 67 Year
  Sex: Female
  Weight: 67 kg

DRUGS (1)
  1. IMATINIB MESYLATE [Suspect]
     Active Substance: IMATINIB MESYLATE
     Indication: Gastrointestinal stromal tumour
     Dosage: 0.3 G, QD
     Route: 048
     Dates: start: 20231030, end: 20241205

REACTIONS (10)
  - Oedema peripheral [Recovering/Resolving]
  - Skin temperature increased [Unknown]
  - Erythema [Recovering/Resolving]
  - Joint swelling [Recovering/Resolving]
  - Pain [Unknown]
  - Drug eruption [Unknown]
  - Generalised oedema [Recovering/Resolving]
  - Rash [Recovering/Resolving]
  - Skin infection [Unknown]
  - Interleukin level increased [Unknown]

NARRATIVE: CASE EVENT DATE: 20241205
